FAERS Safety Report 23193264 (Version 1)
Quarter: 2023Q4

REPORT INFORMATION
  Report Type: Spontaneous
  Country: CA (occurrence: CA)
  Receive Date: 20231116
  Receipt Date: 20231116
  Transmission Date: 20240109
  Serious: Yes (Other)
  Sender: FDA-Public Use
  Company Number: CA-TEVA-2023-CA-2946588

PATIENT
  Age: 60 Year
  Sex: Female

DRUGS (5)
  1. PANTOPRAZOLE [Suspect]
     Active Substance: PANTOPRAZOLE
     Indication: Product used for unknown indication
     Route: 065
  2. CALCIUM CARBONATE/CALCIUM DPANTOTHENATE/ CALCIUM PHOSPHATE/CHROMIUM/ F [Concomitant]
     Indication: Product used for unknown indication
     Route: 065
  3. INFLIXIMAB [Concomitant]
     Active Substance: INFLIXIMAB
     Indication: Product used for unknown indication
     Route: 042
  4. PANTOPRAZOLE SODIUM [Concomitant]
     Active Substance: PANTOPRAZOLE SODIUM
     Indication: Product used for unknown indication
     Dosage: 20 MILLIGRAM DAILY;
     Route: 048
  5. PENTASA [Concomitant]
     Active Substance: MESALAMINE
     Indication: Product used for unknown indication
     Route: 065

REACTIONS (5)
  - Abdominal distension [Unknown]
  - Chest pain [Unknown]
  - Diarrhoea haemorrhagic [Unknown]
  - Flatulence [Unknown]
  - Gastrooesophageal reflux disease [Unknown]
